FAERS Safety Report 6690495-5 (Version None)
Quarter: 2010Q2

REPORT INFORMATION
  Report Type: 
  Country: None (occurrence: None)
  Receive Date: 20100420
  Receipt Date: 20100420
  Transmission Date: 20101027
  Serious: Yes (Life-Threatening, Other)
  Sender: FDA-Public Use
  Company Number: None

PATIENT
  Age: 62 Year
  Sex: Female
  Weight: 52.1637 kg

DRUGS (2)
  1. BONIVA [Suspect]
     Indication: OSTEOPENIA
     Dosage: 1 TABLET -150 MG- ONCE A MONTH PO
     Route: 048
     Dates: start: 20080601, end: 20090901
  2. IDROFOS -GENERIC- 150MG SUN PHARMACEUTICAL IND. LTD. [Suspect]
     Indication: OSTEOPENIA
     Dosage: 1 TABLET -150MG- ONCE A MONTH PO
     Route: 048
     Dates: start: 20091001, end: 20100301

REACTIONS (4)
  - HEPATIC ENZYME INCREASED [None]
  - MYOPATHY TOXIC [None]
  - OVERDOSE [None]
  - POLYMYOSITIS [None]
